FAERS Safety Report 8359207-3 (Version None)
Quarter: 2012Q2

REPORT INFORMATION
  Report Type: 
  Country: None (occurrence: None)
  Receive Date: 20120515
  Receipt Date: 20120507
  Transmission Date: 20120825
  Serious: Yes (Other)
  Sender: FDA-Public Use
  Company Number: TR-BAYER-2012-025819

PATIENT
  Sex: Female
  Weight: 48.073 kg

DRUGS (1)
  1. MIRENA [Suspect]
     Indication: GENITAL HAEMORRHAGE
     Dosage: 20 MCG/24HR, CONT
     Route: 015
     Dates: start: 20110701, end: 20111029

REACTIONS (5)
  - NAUSEA [None]
  - AUTOIMMUNE THYROIDITIS [None]
  - BREAST PAIN [None]
  - HYPOAESTHESIA [None]
  - MYALGIA [None]
